FAERS Safety Report 10571698 (Version 1)
Quarter: 2014Q4

REPORT INFORMATION
  Report Type: Report from Study
  Country: BR (occurrence: BR)
  Receive Date: 20141107
  Receipt Date: 20141107
  Transmission Date: 20150529
  Serious: Yes (Hospitalization)
  Sender: FDA-Public Use
  Company Number: BR-ABBVIE-14K-020-1303293-00

PATIENT
  Sex: Female
  Weight: 69 kg

DRUGS (8)
  1. DIPYRONE [Concomitant]
     Active Substance: DIPYRONE
     Indication: PAIN
  2. GLIBENESE [Concomitant]
     Indication: DIABETES MELLITUS
     Dosage: ONE TABLET AFTER LUNCH ONE TABLET AFTER DINNER
     Route: 048
  3. TEKADIN [Concomitant]
     Indication: DYSPEPSIA
     Route: 048
  4. LOSARTAN [Concomitant]
     Active Substance: LOSARTAN
     Indication: HYPERTENSION
     Dosage: ONE TABLET MORNING AND ONE TABLET EVENING
     Route: 048
  5. GLIBENESE [Concomitant]
     Indication: HYPERTENSION
  6. DIPYRONE [Concomitant]
     Active Substance: DIPYRONE
     Indication: ABDOMINAL PAIN
     Route: 048
  7. HUMIRA [Suspect]
     Active Substance: ADALIMUMAB
     Indication: PSORIATIC ARTHROPATHY
     Route: 058
     Dates: start: 20140501
  8. TEKADIN [Concomitant]
     Indication: ABDOMINAL PAIN UPPER

REACTIONS (5)
  - Abdominal pain upper [Recovering/Resolving]
  - Skin discolouration [Recovering/Resolving]
  - Abdominal pain [Recovering/Resolving]
  - Swelling face [Recovering/Resolving]
  - Sepsis [Recovering/Resolving]

NARRATIVE: CASE EVENT DATE: 2014
